FAERS Safety Report 6949282 (Version 14)
Quarter: 2013Q3

REPORT INFORMATION
  Report Type: Spontaneous
  Country: DE (occurrence: DE)
  Receive Date: 20090324
  Receipt Date: 20130809
  Transmission Date: 20140515
  Serious: Yes (Disabling, Other)
  Sender: FDA-Public Use
  Company Number: PHHY2009DE09700

PATIENT
  Age: 55 Year
  Sex: Female
  Weight: 80 kg

DRUGS (3)
  1. ACLASTA [Suspect]
     Indication: OSTEOPOROSIS
     Dosage: 5 MG, ONCE YEARLY
     Route: 042
     Dates: start: 20071214
  2. ACLASTA [Suspect]
     Dosage: 5 MG, ONCE YEARLY
     Route: 042
     Dates: start: 20081027
  3. BISPHOSPHONATES [Concomitant]
     Indication: OSTEOPOROSIS

REACTIONS (29)
  - Osteonecrosis of jaw [Recovered/Resolved]
  - Pain in jaw [Not Recovered/Not Resolved]
  - Bone swelling [Unknown]
  - Primary sequestrum [Unknown]
  - Swelling face [Unknown]
  - Hypoaesthesia oral [Unknown]
  - Splinter [Unknown]
  - Eye swelling [Unknown]
  - Bone loss [Unknown]
  - Bone disorder [Unknown]
  - Bone atrophy [Unknown]
  - Toothache [Unknown]
  - Tooth loss [Unknown]
  - Oroantral fistula [Unknown]
  - Quality of life decreased [Unknown]
  - Movement disorder [Recovered/Resolved]
  - Device failure [Unknown]
  - Jaw disorder [Unknown]
  - Oral disorder [Unknown]
  - Abscess [Unknown]
  - Loose tooth [Unknown]
  - Depression [Unknown]
  - Inappropriate schedule of drug administration [Unknown]
  - Mental impairment [Unknown]
  - Arthralgia [Unknown]
  - Pain in extremity [Recovered/Resolved]
  - Back pain [Unknown]
  - Pain [Not Recovered/Not Resolved]
  - Dysgeusia [Unknown]
